FAERS Safety Report 20311335 (Version 1)
Quarter: 2022Q1

REPORT INFORMATION
  Report Type: Spontaneous
  Country: NL (occurrence: NL)
  Receive Date: 20220107
  Receipt Date: 20220107
  Transmission Date: 20220423
  Serious: Yes (Life-Threatening)
  Sender: FDA-Public Use
  Company Number: None

PATIENT
  Age: 67 Year
  Sex: Male
  Weight: 77 kg

DRUGS (4)
  1. GEMCITABINE [Suspect]
     Active Substance: GEMCITABINE
     Indication: Cholangiocarcinoma
     Dosage: 1920MG; THERAPY END DATE: ASKU; GEMCITABINE INFUSION POWDER 200MG / BRAND NAME NOT SPECIFIED
     Route: 042
     Dates: start: 20211201
  2. VERAPAMIL [Concomitant]
     Active Substance: VERAPAMIL HYDROCHLORIDE
     Dosage: 120 MG; THERAPY START AND END DATE: ASKU; VERAPAMIL TABLET 120MG / BRAND NAME NOT SPECIFIED
  3. RIVAROXABAN [Concomitant]
     Active Substance: RIVAROXABAN
     Dosage: 20 MG; THERAPY START AND END DATE: ASKU; RIVAROXABAN TABLET 20MG / BRAND NAME NOT SPECIFIED
  4. CISPLATIN [Concomitant]
     Active Substance: CISPLATIN
     Dosage: 48 MG; THERAPY START AND END DATE: ASKU; CISPLATINE INFOPL CONC 1MG/ML / BRAND NAME NOT SPECIFIED
     Route: 042

REACTIONS (1)
  - Hepatic encephalopathy [Recovering/Resolving]

NARRATIVE: CASE EVENT DATE: 20211205
